FAERS Safety Report 7874569-9 (Version None)
Quarter: 2011Q4

REPORT INFORMATION
  Report Type: 
  Country: None (occurrence: None)
  Receive Date: 20111031
  Receipt Date: 20111026
  Transmission Date: 20120403
  Serious: Yes (Other)
  Sender: FDA-Public Use
  Company Number: JP-PFIZER INC-2011261765

PATIENT
  Age: 80 Year
  Sex: Female

DRUGS (3)
  1. LYRICA [Suspect]
     Indication: NECK PAIN
     Dosage: UNK
     Route: 048
     Dates: start: 20110517, end: 20110717
  2. LYRICA [Suspect]
     Dosage: UNK
     Route: 048
     Dates: start: 20110906, end: 20110101
  3. LYRICA [Suspect]
     Indication: BACK PAIN
     Dosage: UNK
     Route: 048
     Dates: start: 20110502, end: 20110516

REACTIONS (4)
  - LIVER FUNCTION TEST ABNORMAL [None]
  - ALPHA 1 FOETOPROTEIN INCREASED [None]
  - SOMNOLENCE [None]
  - DIZZINESS [None]
